FAERS Safety Report 10431467 (Version 1)
Quarter: 2014Q3

REPORT INFORMATION
  Report Type: Spontaneous
  Country: US (occurrence: US)
  Receive Date: 20140904
  Receipt Date: 20140904
  Transmission Date: 20150326
  Serious: Yes (Hospitalization)
  Sender: FDA-Public Use
  Company Number: US-TEVA-506451USA

PATIENT
  Age: 65 Year
  Sex: Female

DRUGS (1)
  1. MINOCYCLINE [Suspect]
     Active Substance: MINOCYCLINE\MINOCYCLINE HYDROCHLORIDE
     Indication: HIDRADENITIS
     Route: 065

REACTIONS (3)
  - Aortic disorder [Recovered/Resolved]
  - Cardiac valve disease [Recovered/Resolved]
  - Pigmentation disorder [Recovered/Resolved]
